FAERS Safety Report 19702322 (Version 1)
Quarter: 2021Q3

REPORT INFORMATION
  Report Type: Spontaneous
  Country: DE (occurrence: DE)
  Receive Date: 20210814
  Receipt Date: 20210814
  Transmission Date: 20211014
  Serious: Yes (Hospitalization)
  Sender: FDA-Public Use
  Company Number: NVSC2021DE177354

PATIENT
  Age: 68 Year
  Sex: Female
  Weight: 82 kg

DRUGS (3)
  1. HOLOXAN [Suspect]
     Active Substance: IFOSFAMIDE
     Indication: B-CELL LYMPHOMA
     Dosage: 10100 MG, QD (BRIDGING THERAPY)
     Route: 042
     Dates: start: 20201115, end: 20201116
  2. FLUDARABINE [Suspect]
     Active Substance: FLUDARABINE PHOSPHATE
     Indication: B-CELL LYMPHOMA
     Dosage: 60.6 MG, QD (LYMPHODEPLETING CHEMOTHERAPY)
     Route: 042
     Dates: start: 20201212, end: 20201214
  3. ENDOXAN [Suspect]
     Active Substance: CYCLOPHOSPHAMIDE
     Indication: B-CELL LYMPHOMA
     Dosage: 606 MG, QD (LYMPHODEPLETING CHEMOTHERAPY)
     Route: 042
     Dates: start: 20201212, end: 20201214

REACTIONS (2)
  - COVID-19 [Not Recovered/Not Resolved]
  - Neutropenia [Recovered/Resolved]

NARRATIVE: CASE EVENT DATE: 20210102
